FAERS Safety Report 17514668 (Version 1)
Quarter: 2020Q1

REPORT INFORMATION
  Report Type: Report from Study
  Country: GB (occurrence: GB)
  Receive Date: 20200309
  Receipt Date: 20200309
  Transmission Date: 20200409
  Serious: Yes (Other)
  Sender: FDA-Public Use
  Company Number: GB-ROCHE-2264586

PATIENT
  Sex: Female

DRUGS (2)
  1. OCREVUS [Suspect]
     Active Substance: OCRELIZUMAB
     Dosage: CYCLE 3
     Route: 041
  2. OCREVUS [Suspect]
     Active Substance: OCRELIZUMAB
     Indication: RELAPSING-REMITTING MULTIPLE SCLEROSIS
     Route: 042

REACTIONS (14)
  - Depression [Unknown]
  - Throat irritation [Recovered/Resolved]
  - Enteritis infectious [Unknown]
  - Headache [Unknown]
  - Pruritus [Unknown]
  - Hyperhidrosis [Unknown]
  - Skin discolouration [Unknown]
  - Nausea [Unknown]
  - Malaise [Unknown]
  - Feeling hot [Unknown]
  - Palpitations [Unknown]
  - Tachycardia [Unknown]
  - Ear pruritus [Unknown]
  - Fatigue [Unknown]
